FAERS Safety Report 7515159-7 (Version None)
Quarter: 2011Q2

REPORT INFORMATION
  Report Type: 
  Country: None (occurrence: None)
  Receive Date: 20110601
  Receipt Date: 20100518
  Transmission Date: 20111010
  Serious: Yes (Other)
  Sender: FDA-Public Use
  Company Number: US-PFIZER INC-2010032865

PATIENT
  Sex: Female
  Weight: 65 kg

DRUGS (6)
  1. CHANTIX [Suspect]
     Indication: SMOKING CESSATION THERAPY
     Dosage: 0.5 MG, 1X/DAY
     Route: 048
     Dates: start: 20100223, end: 20100228
  2. MOBIC [Concomitant]
  3. ROBAXIN [Concomitant]
  4. ULTRAM [Concomitant]
  5. TYLENOL W/ CODEINE NO. 3 [Concomitant]
  6. CHANTIX [Suspect]
     Indication: NICOTINE DEPENDENCE
     Dosage: 1 MG, 2X/DAY
     Dates: start: 20100101

REACTIONS (7)
  - CONSTIPATION [None]
  - HEADACHE [None]
  - SUICIDAL IDEATION [None]
  - DEPRESSED MOOD [None]
  - FLATULENCE [None]
  - NAUSEA [None]
  - INSOMNIA [None]
